FAERS Safety Report 4325526-0 (Version None)
Quarter: 2004Q1

REPORT INFORMATION
  Report Type: 
  Country: None (occurrence: None)
  Receive Date: 20040324
  Receipt Date: 20040312
  Transmission Date: 20041129
  Serious: Yes (Disabling, Other)
  Sender: FDA-Public Use
  Company Number: K200301882

PATIENT
  Sex: Female

DRUGS (3)
  1. ALTACE [Suspect]
     Indication: HYPERTENSION
     Dosage: 5 MG, QD, ORAL; 2.5 MG, QD, ORAL
     Route: 048
     Dates: start: 20030522, end: 20031105
  2. ALTACE [Suspect]
     Indication: HYPERTENSION
     Dosage: 5 MG, QD, ORAL; 2.5 MG, QD, ORAL
     Route: 048
     Dates: start: 20031106, end: 20031202
  3. INDAPAMIDE ^SERVIER^ (INDAPAMIDE) [Concomitant]

REACTIONS (8)
  - CONSTIPATION [None]
  - COUGH [None]
  - DIPLOPIA [None]
  - GASTROINTESTINAL PAIN [None]
  - IMPAIRED DRIVING ABILITY [None]
  - PALPITATIONS [None]
  - VISION BLURRED [None]
  - VISUAL DISTURBANCE [None]
